FAERS Safety Report 24607870 (Version 5)
Quarter: 2025Q2

REPORT INFORMATION
  Report Type: Report from Study
  Country: CA (occurrence: CA)
  Receive Date: 20241112
  Receipt Date: 20250421
  Transmission Date: 20250716
  Serious: Yes (Hospitalization, Other)
  Sender: AMGEN
  Company Number: CA-Vifor (International) Inc.-VIT-2024-10213

PATIENT
  Age: 72 Year
  Sex: Male

DRUGS (3)
  1. AVACOPAN [Suspect]
     Active Substance: AVACOPAN
     Indication: Anti-neutrophil cytoplasmic antibody positive vasculitis
     Dosage: 30,MG,BID
     Route: 048
     Dates: start: 20241029
  2. PLAVIX [Concomitant]
     Active Substance: CLOPIDOGREL BISULFATE
     Route: 065
  3. PREDNISONE [Concomitant]
     Active Substance: PREDNISONE

REACTIONS (14)
  - Pyelocaliectasis [Unknown]
  - Peripheral swelling [Unknown]
  - Dyspnoea [Unknown]
  - Cough [Unknown]
  - Renal disorder [Unknown]
  - Tremor [Unknown]
  - Disease progression [Unknown]
  - Swelling face [Unknown]
  - Burning sensation [Unknown]
  - Tongue discomfort [Unknown]
  - Weight increased [Unknown]
  - Pneumonia [Unknown]
  - Abdominal discomfort [Unknown]
  - Dyschezia [Unknown]

NARRATIVE: CASE EVENT DATE: 20240101
